FAERS Safety Report 7913692-7 (Version None)
Quarter: 2011Q4

REPORT INFORMATION
  Report Type: 
  Country: None (occurrence: None)
  Receive Date: 20111110
  Receipt Date: 20111028
  Transmission Date: 20120403
  Serious: Yes (Hospitalization)
  Sender: FDA-Public Use
  Company Number: 2011CP000177

PATIENT
  Age: 81 Year
  Sex: Female

DRUGS (17)
  1. TAPENTADOL (TAPENTADOL) [Suspect]
     Dosage: 1 DOSAGE FORM; 1 DAY; PO
     Route: 048
     Dates: start: 20110725, end: 20110806
  2. ACETAMINOPHEN [Suspect]
     Dosage: 1 GRAM; IV
     Route: 042
     Dates: start: 20110725, end: 20110802
  3. TETRAZEPAM (TETRAZEPAM) [Suspect]
     Dosage: 1 DOSAGE FORM; 1 DAY; PO
     Route: 048
     Dates: start: 20110724, end: 20110806
  4. NADROPARIN CALCIUM [Concomitant]
  5. ZOLPIDEM TARTRATE [Suspect]
     Dosage: 10 MG; 1/1 DAY;PO
     Route: 048
     Dates: start: 20110723, end: 20110808
  6. OLMESARTAN MEDOXOMIL AND HYDROCHLOROTHIZIDE [Concomitant]
  7. SIMVASTATIN [Concomitant]
  8. METAMIZOLE [Concomitant]
  9. THYRONAJOD [Concomitant]
  10. LYRICA [Suspect]
     Dosage: 75 MG; 2/1 DAY;PO
     Route: 048
     Dates: start: 20110725, end: 20110808
  11. DIPYRONE TAB [Concomitant]
  12. KALINOR (POTASSIUM CIT+POTASSIUM BICARB) [Concomitant]
  13. METOPROLOL TARTRATE [Concomitant]
  14. HYDROCHLOROTHIAZIDE [Concomitant]
  15. PANTOPRAZOLE SODIUM [Concomitant]
  16. FENTANYL [Concomitant]
  17. METOCLOPRAMIDE HYDROCHLORIDE [Concomitant]

REACTIONS (3)
  - CHOLESTASIS [None]
  - ARTHRALGIA [None]
  - HEPATITIS ACUTE [None]
